FAERS Safety Report 9128238 (Version 2)
Quarter: 2013Q2

REPORT INFORMATION
  Report Type: Report from Study
  Country: AU (occurrence: AU)
  Receive Date: 20130228
  Receipt Date: 20130626
  Transmission Date: 20140414
  Serious: Yes (Hospitalization)
  Sender: FDA-Public Use
  Company Number: PHHY2013AU019876

PATIENT
  Age: 65 Year
  Sex: Male
  Weight: 122 kg

DRUGS (7)
  1. ACLASTA [Suspect]
     Indication: OSTEOPOROSIS
     Dosage: 5 MG, UNK
     Route: 042
     Dates: start: 20120228
  2. VIT D [Concomitant]
     Indication: VITAMIN D DEFICIENCY
     Dosage: 2000 U, QD
     Route: 048
  3. ZOLOFT [Concomitant]
     Dosage: 50 MG, UNK
     Route: 048
  4. FENAC [Concomitant]
     Dosage: 50 MG, BID
     Route: 048
  5. COVERSYL PLUS                      /01421201/ [Concomitant]
     Dosage: 5/1.25 MG
     Route: 048
  6. CADUET [Concomitant]
     Dosage: UNK
     Route: 048
  7. CALTRATE [Concomitant]
     Dosage: 1000 MG, UNK
     Route: 048

REACTIONS (9)
  - Femur fracture [Unknown]
  - Loss of consciousness [Unknown]
  - Fall [Unknown]
  - Lower limb fracture [Recovered/Resolved]
  - Lung consolidation [Unknown]
  - Comminuted fracture [Unknown]
  - Fracture displacement [Unknown]
  - Skeletal dysplasia [Unknown]
  - Pulmonary congestion [Unknown]
